FAERS Safety Report 21260095 (Version 3)
Quarter: 2023Q2

REPORT INFORMATION
  Report Type: Spontaneous
  Country: CA (occurrence: CA)
  Receive Date: 20220826
  Receipt Date: 20230613
  Transmission Date: 20230722
  Serious: Yes (Other)
  Sender: FDA-Public Use
  Company Number: CA-ANIPHARMA-2022-CA-001249

PATIENT
  Age: 33 Year
  Sex: Female

DRUGS (11)
  1. CANDESARTAN CILEXETIL [Suspect]
     Active Substance: CANDESARTAN CILEXETIL
     Indication: Migraine
     Dosage: 16 MG QD
     Route: 048
     Dates: start: 201806
  2. NADOLOL [Concomitant]
     Active Substance: NADOLOL
     Route: 065
  3. TORADOL [Concomitant]
     Active Substance: KETOROLAC TROMETHAMINE
     Route: 065
  4. AMITRIPTYLINE [Suspect]
     Active Substance: AMITRIPTYLINE
     Route: 065
     Dates: start: 201411, end: 201502
  5. TOPIRAMATE [Suspect]
     Active Substance: TOPIRAMATE
     Dosage: 50 MG BID
     Route: 048
     Dates: start: 20140323, end: 20140419
  6. .FLEXERIL [Concomitant]
     Route: 065
  7. MAGNESIUM [Concomitant]
     Active Substance: MAGNESIUM
     Route: 065
  8. RIBOFLAVIN [Concomitant]
     Active Substance: RIBOFLAVIN
     Route: 065
  9. SUMATRIPTAN [Concomitant]
     Active Substance: SUMATRIPTAN
     Dosage: 20 MG UNK
     Route: 065
  10. ADVIL [Concomitant]
     Active Substance: IBUPROFEN
     Route: 065
  11. CYCLOBENZAPRINE [Concomitant]
     Active Substance: CYCLOBENZAPRINE
     Dosage: 10 MG QD
     Route: 048

REACTIONS (7)
  - Drug ineffective [Recovered/Resolved]
  - Drug intolerance [Recovered/Resolved]
  - Migraine [Recovered/Resolved]
  - Off label use [Recovered/Resolved]
  - Headache [Recovered/Resolved]
  - Hemianopia homonymous [Recovered/Resolved]
  - Photophobia [Recovered/Resolved]
